FAERS Safety Report 9619642 (Version 2)
Quarter: 2013Q4

REPORT INFORMATION
  Report Type: Report from Study
  Country: AU (occurrence: AU)
  Receive Date: 20131014
  Receipt Date: 20131014
  Transmission Date: 20140711
  Serious: Yes (Disabling, Other)
  Sender: FDA-Public Use
  Company Number: PHHY2013AU104575

PATIENT
  Age: 74 Year
  Sex: Female
  Weight: 61 kg

DRUGS (10)
  1. ACLASTA [Suspect]
     Indication: OSTEOPOROSIS
     Dosage: 5 MG, UNK
     Route: 042
     Dates: start: 20110627
  2. ACLASTA [Suspect]
     Dosage: 5 MG, UNK
     Route: 042
     Dates: start: 20120913
  3. CALTRATE + VITAMIN D [Concomitant]
     Dosage: 600 MG, 400 IU TABLET, QD
  4. CELEBREX [Concomitant]
     Dosage: 1 TO 2 DAILY  PRN
  5. EUTROXSIG [Concomitant]
     Dosage: 1 DF, UNK
  6. LIPITOR [Concomitant]
     Dosage: 1 DF, UNK
  7. PANADOL OSTEO [Concomitant]
     Dosage: 2 DF, TID
  8. PANTOPRAZOLE [Concomitant]
     Dosage: 1 DF,  1 BEFORE BED
  9. SERTRALINE [Concomitant]
     Dosage: 1.5 DF, (150 MG IN THE MORNING
  10. TRIMETHOPRIM [Concomitant]
     Dosage: 1 DF, 1 BEFORE BED AS DIRECTED FOR 7 NIGHTS

REACTIONS (6)
  - Lumbar vertebral fracture [Recovering/Resolving]
  - Back pain [Unknown]
  - Hand fracture [Unknown]
  - Intervertebral disc degeneration [Unknown]
  - Blood parathyroid hormone increased [Unknown]
  - Bone density decreased [Unknown]
